FAERS Safety Report 8431446-2 (Version None)
Quarter: 2012Q2

REPORT INFORMATION
  Report Type: 
  Country: None (occurrence: None)
  Receive Date: 20120613
  Receipt Date: 20120604
  Transmission Date: 20120825
  Serious: Yes (Hospitalization)
  Sender: FDA-Public Use
  Company Number: US-BAYER-201031817NA

PATIENT
  Age: 37 Year
  Sex: Female
  Weight: 95 kg

DRUGS (16)
  1. YASMIN [Suspect]
     Indication: ORAL CONTRACEPTION
     Dosage: UNK
     Route: 048
     Dates: start: 20070101, end: 20090101
  2. ZITHROMAX [Concomitant]
     Indication: INFECTION
     Dosage: 250 MG, UNK
     Dates: start: 20090201
  3. YASMIN [Suspect]
     Indication: DEPRESSION
  4. WELLBUTRIN [Concomitant]
     Indication: DEPRESSION
  5. WOMEN+#8217;S VITAMINS [Concomitant]
  6. HYDROCHLOROTHIAZIDE [Concomitant]
  7. ACETAMINOPHEN [Concomitant]
     Dosage: UNK UNK, PRN
  8. AZITHROMYCIN [Concomitant]
  9. GUAIFENESIN/CODEINE [Concomitant]
  10. FERROUS SULFATE TAB [Concomitant]
     Indication: ANAEMIA
     Dosage: 325 MG, UNK
     Dates: start: 20090201
  11. YASMIN [Suspect]
     Indication: PREMENSTRUAL SYNDROME
  12. WELLBUTRIN [Concomitant]
     Indication: INFLAMMATION
     Dosage: UNK
     Dates: start: 20050101, end: 20090101
  13. NSAID'S [Concomitant]
     Dosage: UNK
     Dates: start: 20050101, end: 20090101
  14. DOXYCYCLINE [Concomitant]
     Indication: INFECTION
     Dosage: 100 MG, UNK
     Dates: start: 20090201
  15. LORTAB [Concomitant]
     Dosage: 5/500 TID
  16. YASMIN [Suspect]
     Indication: ACNE

REACTIONS (3)
  - DEPRESSION [None]
  - ANXIETY [None]
  - DEEP VEIN THROMBOSIS [None]
